FAERS Safety Report 4585026-X (Version None)
Quarter: 2005Q1

REPORT INFORMATION
  Report Type: 
  Country: None (occurrence: None)
  Receive Date: 20050217
  Receipt Date: 20041208
  Transmission Date: 20050727
  Serious: No
  Sender: FDA-Public Use
  Company Number: US-GLAXOSMITHKLINE-A0536640A

PATIENT

DRUGS (3)
  1. WELLBUTRIN XL [Suspect]
     Route: 048
  2. UNKNOWN MEDICATION [Concomitant]
  3. EFFEXOR [Concomitant]

REACTIONS (1)
  - MUSCLE TWITCHING [None]
